FAERS Safety Report 7327883-X (Version None)
Quarter: 2011Q1

REPORT INFORMATION
  Report Type: 
  Country: None (occurrence: None)
  Receive Date: 20110303
  Receipt Date: 20110223
  Transmission Date: 20110831
  Serious: Yes (Hospitalization, Other)
  Sender: FDA-Public Use
  Company Number: US-ASTRAZENECA-2007UW02039

PATIENT
  Age: 17 Year
  Sex: Female
  Weight: 90.7 kg

DRUGS (32)
  1. SEROQUEL [Suspect]
     Dosage: 25-300 MG
     Route: 048
  2. SEROQUEL [Suspect]
     Dosage: 25-300 MG
     Route: 048
  3. SEROQUEL [Suspect]
     Dosage: 100 MG TO 200 MG
     Route: 048
     Dates: start: 20020321
  4. TERAZOL 1 [Concomitant]
     Route: 067
  5. SEROQUEL [Suspect]
     Indication: MOOD SWINGS
     Dosage: 50-300 MG
     Route: 048
     Dates: start: 20010706, end: 20030201
  6. EFFEXOR [Concomitant]
     Route: 048
     Dates: start: 20020321
  7. WELLBUTRIN [Concomitant]
     Route: 048
     Dates: start: 20020529
  8. HUMALOG [Concomitant]
     Route: 048
  9. DEPO-PROVERA [Concomitant]
     Route: 030
  10. EFFEXOR [Concomitant]
     Route: 048
     Dates: start: 20020715
  11. METRONIDAZOLE [Concomitant]
     Route: 048
  12. CLOTRIMAZOLE [Concomitant]
     Route: 061
  13. SEROQUEL [Suspect]
     Indication: ANGER
     Dosage: 50-300 MG
     Route: 048
     Dates: start: 20010706, end: 20030201
  14. NPH INSULIN [Concomitant]
     Route: 065
  15. SEROQUEL [Suspect]
     Dosage: 100 MG TO 200 MG
     Route: 048
     Dates: start: 20020321
  16. ZYRTEC [Concomitant]
     Route: 048
     Dates: start: 20020321
  17. BENADRYL [Concomitant]
     Route: 048
  18. LORATADINE [Concomitant]
     Route: 065
  19. VALTREX [Concomitant]
     Route: 048
  20. SEROQUEL [Suspect]
     Indication: IRRITABILITY
     Dosage: 50-300 MG
     Route: 048
     Dates: start: 20010706, end: 20030201
  21. PRILOSEC [Concomitant]
     Route: 048
  22. FLUCONAZOLE [Concomitant]
     Route: 048
  23. METADATE CD [Concomitant]
     Route: 048
     Dates: start: 20020807
  24. SEROQUEL [Suspect]
     Dosage: 25-300 MG
     Route: 048
  25. IBUPROFEN [Concomitant]
     Route: 048
  26. BENADRYL [Concomitant]
     Route: 048
  27. HUMULIN R [Concomitant]
     Route: 065
  28. SEROQUEL [Suspect]
     Dosage: 100 MG TO 200 MG
     Route: 048
     Dates: start: 20020321
  29. RISPERDAL [Concomitant]
     Dosage: AROUND 20 MG
     Dates: start: 20040401, end: 20040901
  30. METFORMIN [Concomitant]
     Route: 048
  31. CIPROFLOXACIN [Concomitant]
     Route: 048
  32. TOPAMAX [Concomitant]
     Dosage: 25-75 MG
     Route: 048

REACTIONS (8)
  - HYPONATRAEMIA [None]
  - SUICIDAL IDEATION [None]
  - WEIGHT INCREASED [None]
  - DIABETES MELLITUS [None]
  - HYPERGLYCAEMIA [None]
  - OBESITY [None]
  - HOMICIDAL IDEATION [None]
  - ASTHMA [None]
